FAERS Safety Report 7432745-3 (Version None)
Quarter: 2011Q2

REPORT INFORMATION
  Report Type: 
  Country: None (occurrence: None)
  Receive Date: 20110422
  Receipt Date: 20110418
  Transmission Date: 20111010
  Serious: Yes (Disabling)
  Sender: FDA-Public Use
  Company Number: A0923368A

PATIENT
  Age: 67 Year
  Sex: Male

DRUGS (2)
  1. COREG [Suspect]
     Indication: HYPERTENSION
     Dosage: 3.125MG TWICE PER DAY
     Route: 048
     Dates: start: 20110416, end: 20110417
  2. UNKNOWN MEDICATION [Concomitant]

REACTIONS (4)
  - LOCAL SWELLING [None]
  - HYPERSENSITIVITY [None]
  - SWELLING FACE [None]
  - RASH [None]
